FAERS Safety Report 10269595 (Version 1)
Quarter: 2014Q2

REPORT INFORMATION
  Report Type: Spontaneous
  Country: US (occurrence: None)
  Receive Date: 20140625
  Receipt Date: 20140625
  Transmission Date: 20141212
  Serious: Yes (Other)
  Sender: FDA-Public Use
  Company Number: 2014US00625

PATIENT
  Sex: 0

DRUGS (5)
  1. TOPIRAMATE [Suspect]
     Indication: GLUCOSE TOLERANCE IMPAIRED
  2. TOPIRAMATE [Suspect]
     Indication: METABOLIC SYNDROME
  3. TOPIRAMATE [Suspect]
  4. PHENTERMINE (PHENTERMINE) [Suspect]
     Indication: GLUCOSE TOLERANCE IMPAIRED
  5. PHENTERMINE (PHENTERMINE) [Suspect]
     Indication: METABOLIC SYNDROME

REACTIONS (1)
  - Bursitis infective [None]
